FAERS Safety Report 10421077 (Version 2)
Quarter: 2014Q4

REPORT INFORMATION
  Report Type: Spontaneous
  Country: US (occurrence: None)
  Receive Date: 20140722
  Receipt Date: 20141121
  Transmission Date: 20150528
  Serious: No
  Sender: FDA-Public Use
  Company Number: 163-10004-14052651

PATIENT
  Age: 58 Year
  Sex: Female

DRUGS (12)
  1. VALTRIM (OTHER THERAPEUTIC PRODUCTS) [Concomitant]
  2. SYNTHROID (LEVOTHYROXINE PHOSPHATE) [Concomitant]
  3. VITAMIN D (ERGOCALCIFEROL) [Concomitant]
     Active Substance: ERGOCALCIFEROL
  4. TRAMADOL HCL [Concomitant]
     Active Substance: TRAMADOL HYDROCHLORIDE
  5. LEVOTHYROID (LEVOTHYROXINE SODIUM) [Concomitant]
  6. PLAQUENIL (HYDROXYCHLOROQUINE) [Concomitant]
  7. CALCIUM + D (OS-CAL) [Concomitant]
  8. VALSARTAN HYDROCHLOROTHIAZIDE (CO-DIOVAN) [Concomitant]
  9. OTEZLA [Suspect]
     Active Substance: APREMILAST
     Indication: PSORIATIC ARTHROPATHY
     Route: 048
     Dates: start: 20140507
  10. KRILL OIL (FISH OIL) [Concomitant]
  11. VITAMIN C [Concomitant]
     Active Substance: ASCORBIC ACID
  12. HYDROCHLOROQUINE SULFATE [Concomitant]

REACTIONS (6)
  - Asthenia [None]
  - Nausea [None]
  - Migraine [None]
  - Vomiting [None]
  - Influenza like illness [None]
  - Decreased appetite [None]

NARRATIVE: CASE EVENT DATE: 20140512
